FAERS Safety Report 10040293 (Version 1)
Quarter: 2014Q1

REPORT INFORMATION
  Report Type: Spontaneous
  Country: US (occurrence: US)
  Receive Date: 20140327
  Receipt Date: 20140327
  Transmission Date: 20141002
  Serious: Yes (Death, Hospitalization, Other)
  Sender: FDA-Public Use
  Company Number: US-009507513-1403USA009540

PATIENT
  Sex: Male

DRUGS (1)
  1. PROVENTIL [Suspect]
     Dosage: UNK
     Route: 055

REACTIONS (3)
  - Hepatic cancer [Fatal]
  - Renal cancer [Fatal]
  - Oesophageal carcinoma [Fatal]
